FAERS Safety Report 21920818 (Version 2)
Quarter: 2023Q1

REPORT INFORMATION
  Report Type: Report from Study
  Country: US (occurrence: US)
  Receive Date: 20230127
  Receipt Date: 20230207
  Transmission Date: 20230417
  Serious: Yes (Hospitalization)
  Sender: FDA-Public Use
  Company Number: US-ASTELLAS-2023US001215

PATIENT
  Sex: Male

DRUGS (45)
  1. ENZALUTAMIDE [Suspect]
     Active Substance: ENZALUTAMIDE
     Indication: Prostate cancer
     Route: 048
     Dates: start: 20220304, end: 20221201
  2. ASPIRIN [Concomitant]
     Active Substance: ASPIRIN
     Indication: Product used for unknown indication
     Dosage: 81 MG, UNKNOWN FREQ. EC
     Route: 065
  3. FLAX [Concomitant]
     Indication: Product used for unknown indication
     Route: 065
  4. FLAX [Concomitant]
     Dosage: 1300 MG, TWICE DAILY (1 MORNING AND 1 EVENING)
     Route: 065
  5. IRON [Concomitant]
     Active Substance: IRON
     Indication: Product used for unknown indication
     Route: 065
  6. IRON [Concomitant]
     Active Substance: IRON
     Dosage: 325 MG, TWICE DAILY (1 MORNING AND 1 EVENING)
     Route: 065
  7. REPATHA [Concomitant]
     Active Substance: EVOLOCUMAB
     Indication: Blood cholesterol increased
     Route: 065
  8. REPATHA [Concomitant]
     Active Substance: EVOLOCUMAB
     Indication: Cardiac disorder
  9. MYRBETRIQ [Concomitant]
     Active Substance: MIRABEGRON
     Indication: Incontinence
     Dosage: 50 MG, ONCE DAILY (MORNING)
     Route: 065
  10. NITROGLYCERIN [Concomitant]
     Active Substance: NITROGLYCERIN
     Indication: Cardiac disorder
     Dosage: UNK UNK, AS NEEDED
     Route: 060
  11. NEXIUM [Concomitant]
     Active Substance: ESOMEPRAZOLE MAGNESIUM
     Indication: Product used for unknown indication
     Dosage: UNK UNK, UNKNOWN FREQ.
     Route: 065
  12. Prednisolone accord [Concomitant]
     Indication: Eye disorder
     Dosage: 1 DF, THRICE DAILY (1 DROP)
     Route: 047
     Dates: start: 20230106
  13. AMOXICILLIN\CLAVULANIC ACID [Concomitant]
     Active Substance: AMOXICILLIN\CLAVULANIC ACID
     Indication: Antibiotic therapy
     Dosage: 875 MG- 125 MG(1 MORNING AND 1 EVENING), TWICE DAILY (10 DAYS/1-19)
     Route: 065
     Dates: start: 20230119
  14. AZITHROMYCIN ANHYDROUS [Concomitant]
     Active Substance: AZITHROMYCIN ANHYDROUS
     Indication: Antibiotic therapy
     Dosage: 250 MG, OTHER (1 MORNING AND 1 EVENING) (MWF)
     Route: 065
     Dates: start: 20221223
  15. FUROSEMIDE [Concomitant]
     Active Substance: FUROSEMIDE
     Indication: Cardiac disorder
     Dosage: UNK UNK, UNKNOWN FREQ.
     Route: 065
     Dates: end: 20221001
  16. FUROSEMIDE [Concomitant]
     Active Substance: FUROSEMIDE
     Dosage: 20 MG, TWICE DAILY (1 MORNING AND 1 EVENING)
     Route: 065
     Dates: start: 20221223
  17. CLOPIDOGREL [Concomitant]
     Active Substance: CLOPIDOGREL BISULFATE
     Indication: Cardiac disorder
     Dosage: 75 MG, OTHER (1 MORNING EVERY M,W,SA)
     Route: 065
  18. CLOPIDOGREL [Concomitant]
     Active Substance: CLOPIDOGREL BISULFATE
     Indication: Anticoagulant therapy
  19. ROSUVASTATIN [Concomitant]
     Active Substance: ROSUVASTATIN
     Indication: Blood cholesterol increased
     Dosage: 40 MG, ONCE DAILY (EVENING)
     Route: 065
  20. LEVOTHYROXINE [Concomitant]
     Active Substance: LEVOTHYROXINE
     Indication: Thyroid disorder
     Dosage: 112 ?G, ONCE DAILY (1 MORNING)
     Route: 065
  21. PROBENECID [Concomitant]
     Active Substance: PROBENECID
     Indication: Blood uric acid
     Dosage: 500 MG, ONCE DAILY (MORNING)
     Route: 065
  22. PANTOPRAZOLE SODIUM [Concomitant]
     Active Substance: PANTOPRAZOLE SODIUM
     Indication: Gastrooesophageal reflux disease
     Dosage: 40 MG, ONCE DAILY (MORNING)
     Route: 065
  23. VENLAFAXINE HCL [Concomitant]
     Active Substance: VENLAFAXINE HYDROCHLORIDE
     Indication: Anxiety
     Dosage: 75 MG, ONCE DAILY (MORNING)
     Route: 065
  24. VENLAFAXINE HCL [Concomitant]
     Active Substance: VENLAFAXINE HYDROCHLORIDE
     Indication: Depression
  25. ANORO ELLIPTA [Concomitant]
     Active Substance: UMECLIDINIUM BROMIDE\VILANTEROL TRIFENATATE
     Indication: Emphysema
     Dosage: 62.5/25, ONCE DAILY (MORNING)
     Route: 050
  26. BUSPIRONE [Concomitant]
     Active Substance: BUSPIRONE HYDROCHLORIDE
     Indication: Anxiety
     Route: 065
  27. BUSPIRONE [Concomitant]
     Active Substance: BUSPIRONE HYDROCHLORIDE
     Indication: Tremor
     Dosage: 15 MG, AS NEEDED (1-3 DAILY)
     Route: 065
     Dates: start: 20221026
  28. ASPIRIN [Concomitant]
     Active Substance: ASPIRIN
     Indication: Product used for unknown indication
     Dosage: 325 MG, ONCE DAILY (1 MORNING)
     Route: 065
  29. Flax oil [Concomitant]
     Indication: Product used for unknown indication
     Dosage: 1300 MG, TWICE DAILY (1 MORNING AND 1 EVENING)
     Route: 065
  30. HERBALS\TURMERIC [Concomitant]
     Active Substance: HERBALS\TURMERIC
     Indication: Product used for unknown indication
     Route: 065
  31. PROBIOTICS NOS [Concomitant]
     Active Substance: PROBIOTICS NOS
     Indication: Product used for unknown indication
     Dosage: UNK UNK, AS NEEDED
     Route: 065
  32. BENADRYL [Concomitant]
     Active Substance: DIPHENHYDRAMINE HYDROCHLORIDE
     Indication: Pain
     Dosage: UNK UNK, AS NEEDED
     Route: 065
  33. PROAIR HFA [Concomitant]
     Active Substance: ALBUTEROL SULFATE
     Indication: Emphysema
     Dosage: UNK UNK, AS NEEDED
     Route: 065
  34. ALBUTEROL SULFATE [Concomitant]
     Active Substance: ALBUTEROL SULFATE
     Indication: Emphysema
     Route: 050
  35. AZELASTINE HYDROCHLORIDE\FLUTICASONE PROPIONATE [Concomitant]
     Active Substance: AZELASTINE HYDROCHLORIDE\FLUTICASONE PROPIONATE
     Indication: Nasal disorder
     Dosage: 137-50 MCG, AS NEEDED
     Route: 045
  36. TEMAZEPAM [Concomitant]
     Active Substance: TEMAZEPAM
     Indication: Sleep disorder
     Route: 065
  37. DIAZEPAM [Concomitant]
     Active Substance: DIAZEPAM
     Indication: Anxiety
     Route: 065
  38. HYDROCODONE [Concomitant]
     Active Substance: HYDROCODONE
     Indication: Pain
     Dosage: 10-325, AS NEEDED
     Route: 065
  39. NITROSTAT [Concomitant]
     Active Substance: NITROGLYCERIN
     Indication: Cardiac disorder
     Dosage: 0.4, AS NEEDED
     Route: 060
  40. ATROPINE\DIPHENOXYLATE [Concomitant]
     Active Substance: ATROPINE\DIPHENOXYLATE
     Indication: Diarrhoea
     Dosage: 2.5, AS NEEDED
     Route: 065
  41. AMLODIPINE [Concomitant]
     Active Substance: AMLODIPINE BESYLATE
     Indication: Product used for unknown indication
     Route: 065
  42. AMLODIPINE [Concomitant]
     Active Substance: AMLODIPINE BESYLATE
     Dosage: 5 MG, ONCE DAILY (MORNING)
     Route: 065
     Dates: start: 20220310, end: 20220810
  43. TRAZODONE [Concomitant]
     Active Substance: TRAZODONE HYDROCHLORIDE
     Indication: Sleep disorder
     Route: 065
  44. TRAZODONE [Concomitant]
     Active Substance: TRAZODONE HYDROCHLORIDE
     Dosage: 150 MG, AS NEEDED (BED TIME)
     Route: 065
     Dates: start: 20221026, end: 20221223
  45. MINOCYCLINE [Concomitant]
     Active Substance: MINOCYCLINE HYDROCHLORIDE
     Indication: Eye disorder
     Dosage: 100 MG, ONCE DAILY (MORNING)
     Route: 065
     Dates: end: 20221223

REACTIONS (6)
  - Abdominal discomfort [Recovered/Resolved]
  - Blood pressure increased [Recovered/Resolved]
  - Hypotension [Not Recovered/Not Resolved]
  - Oxygen saturation decreased [Not Recovered/Not Resolved]
  - Throat clearing [Not Recovered/Not Resolved]
  - Cough [Unknown]

NARRATIVE: CASE EVENT DATE: 20220101
